FAERS Safety Report 15850975 (Version 2)
Quarter: 2019Q1

REPORT INFORMATION
  Report Type: Spontaneous
  Country: ES (occurrence: ES)
  Receive Date: 20190121
  Receipt Date: 20190201
  Transmission Date: 20190417
  Serious: Yes (Hospitalization, Other)
  Sender: FDA-Public Use
  Company Number: ES-ALEXION-A201900688

PATIENT
  Age: 39 Year
  Sex: Female

DRUGS (3)
  1. RANITIDINE. [Suspect]
     Active Substance: RANITIDINE
     Indication: ABDOMINAL DISCOMFORT
     Route: 065
  2. CIPROFLOXACIN. [Suspect]
     Active Substance: CIPROFLOXACIN
     Indication: PROPHYLAXIS
     Dosage: UNK
     Route: 065
  3. SOLIRIS [Suspect]
     Active Substance: ECULIZUMAB
     Indication: ATYPICAL HAEMOLYTIC URAEMIC SYNDROME
     Dosage: 900 MG, UNK
     Route: 065
     Dates: start: 20181221, end: 20190104

REACTIONS (7)
  - Hepatotoxicity [Unknown]
  - Blood lactate dehydrogenase increased [Unknown]
  - Aspartate aminotransferase increased [Not Recovered/Not Resolved]
  - Blood alkaline phosphatase increased [Unknown]
  - Gamma-glutamyltransferase increased [Not Recovered/Not Resolved]
  - Pyrexia [Recovered/Resolved]
  - Alanine aminotransferase increased [Not Recovered/Not Resolved]

NARRATIVE: CASE EVENT DATE: 20190104
